FAERS Safety Report 17651272 (Version 2)
Quarter: 2020Q2

REPORT INFORMATION
  Report Type: Report from Study
  Country: US (occurrence: US)
  Receive Date: 20200409
  Receipt Date: 20200602
  Transmission Date: 20200713
  Serious: No
  Sender: FDA-Public Use
  Company Number: NVSC2020US094880

PATIENT
  Sex: Male

DRUGS (1)
  1. COSENTYX [Suspect]
     Active Substance: SECUKINUMAB
     Indication: ANKYLOSING SPONDYLITIS
     Dosage: QW(BENEATH THE SKIN,USUALLY VIA INJECTION)
     Route: 058
     Dates: start: 202003

REACTIONS (2)
  - Upper respiratory tract infection [Recovered/Resolved]
  - Product dose omission [Recovered/Resolved]
